FAERS Safety Report 14683142 (Version 2)
Quarter: 2020Q2

REPORT INFORMATION
  Report Type: Spontaneous
  Country: US (occurrence: US)
  Receive Date: 20180327
  Receipt Date: 20200629
  Transmission Date: 20200713
  Serious: No
  Sender: FDA-Public Use
  Company Number: US-009507513-1803USA011052

PATIENT
  Age: 79 Year
  Sex: Female

DRUGS (8)
  1. VICKS NYQUIL (OLD FORMULA) [Concomitant]
  2. VICKS DAYQUIL (OLD FORMULA) [Concomitant]
  3. PROVENTIL [Suspect]
     Active Substance: ALBUTEROL
     Dosage: AS NEEDED
     Route: 055
  4. PULMICORT TURBUHALER [Concomitant]
     Active Substance: BUDESONIDE
  5. NITROSTAT [Concomitant]
     Active Substance: NITROGLYCERIN
  6. PROVENTIL [Suspect]
     Active Substance: ALBUTEROL
     Dosage: 2 PUFFS EVERY 4 HOURS
     Dates: end: 202006
  7. ASPIRIN. [Concomitant]
     Active Substance: ASPIRIN
     Dosage: BABY ASPIRIN
  8. HYZAAR [Concomitant]
     Active Substance: HYDROCHLOROTHIAZIDE\LOSARTAN POTASSIUM

REACTIONS (10)
  - Nasopharyngitis [Not Recovered/Not Resolved]
  - Arthritis [Unknown]
  - Visual impairment [Unknown]
  - Respiratory tract congestion [Not Recovered/Not Resolved]
  - Wheezing [Unknown]
  - Cough [Not Recovered/Not Resolved]
  - Wheezing [Not Recovered/Not Resolved]
  - Device difficult to use [Unknown]
  - Poor quality device used [Unknown]
  - Product label issue [Unknown]

NARRATIVE: CASE EVENT DATE: 20180313
